FAERS Safety Report 7654051-4 (Version None)
Quarter: 2011Q3

REPORT INFORMATION
  Report Type: 
  Country: None (occurrence: None)
  Receive Date: 20110803
  Receipt Date: 20110725
  Transmission Date: 20111222
  Serious: Yes (Other)
  Sender: FDA-Public Use
  Company Number: PHHY2011US45443

PATIENT
  Sex: Female

DRUGS (6)
  1. QUINAPRIL HCL [Concomitant]
     Indication: HYPERTENSION
     Dosage: 10 MG, QD
     Route: 048
  2. PHENOBARBITAL TAB [Concomitant]
     Indication: CONVULSION
     Dosage: 30 MG, QID
     Route: 048
  3. FIORICET [Concomitant]
     Indication: HEADACHE
     Dates: start: 20110101
  4. GILENYA [Suspect]
     Indication: MULTIPLE SCLEROSIS
     Dosage: 0.5 MG, QD
     Route: 048
     Dates: start: 20110401, end: 20110501
  5. LORAZEPAM [Concomitant]
     Dosage: 1 MG, TID
     Route: 048
  6. LORTAB [Concomitant]
     Dosage: 510 MG, QD
     Route: 048

REACTIONS (2)
  - DELUSION [None]
  - CONVULSION [None]
